FAERS Safety Report 6767722-9 (Version None)
Quarter: 2010Q2

REPORT INFORMATION
  Report Type: 
  Country: None (occurrence: None)
  Receive Date: 20100610
  Receipt Date: 20100526
  Transmission Date: 20101027
  Serious: Yes (Hospitalization)
  Sender: FDA-Public Use
  Company Number: 012733

PATIENT
  Age: 72 Year
  Sex: Male

DRUGS (5)
  1. LACOSAMIDE (LCS) [Suspect]
     Indication: STATUS EPILEPTICUS
     Dosage: 25 MG 1X/12 HOURS, 200 MG
  2. LEVETIRACETAM (LEV) [Suspect]
     Indication: EPILEPSY
     Dosage: 3000 MG, 2000 MG
  3. OXCARBAZEPINE [Concomitant]
  4. VALPROIC ACID [Concomitant]
  5. CLOBAZAM [Concomitant]

REACTIONS (5)
  - ALTERED STATE OF CONSCIOUSNESS [None]
  - DRUG INEFFECTIVE [None]
  - ELECTROENCEPHALOGRAM ABNORMAL [None]
  - METAMORPHOPSIA [None]
  - VISUAL IMPAIRMENT [None]
